FAERS Safety Report 9697286 (Version 1)
Quarter: 2013Q4

REPORT INFORMATION
  Report Type: Report from Study
  Country: US (occurrence: US)
  Receive Date: 20131120
  Receipt Date: 20131120
  Transmission Date: 20140711
  Serious: Yes (Other)
  Sender: FDA-Public Use
  Company Number: US-ROCHE-1301998

PATIENT
  Age: 59 Year
  Sex: Male

DRUGS (9)
  1. HERCEPTIN [Suspect]
     Indication: OESOPHAGEAL CARCINOMA
     Dosage: AS DIRECTED
     Route: 042
     Dates: start: 20131025, end: 20131025
  2. HERCEPTIN [Suspect]
     Route: 065
     Dates: start: 20131004
  3. CAPECITABINE [Suspect]
     Indication: PRODUCT USED FOR UNKNOWN INDICATION
     Dosage: 500MG, TAKE 4 BID DAYS, 1-14 REFILLS, TAKE WITH WATER AND WITHIN 30 MINUTES OF END OF MEAL.
     Route: 048
     Dates: start: 20131025, end: 20131025
  4. CAPECITABINE [Suspect]
     Route: 065
     Dates: start: 20131004
  5. MORPHINE SULFATE [Concomitant]
     Dosage: SOLID
     Route: 048
  6. IRINOTECAN [Concomitant]
     Dosage: 20MG/ML, 23ML IN 500ML D5W, DISPENSE 100MG X2 40MG X2.
     Route: 065
     Dates: start: 20131004
  7. ATROPINE SULFATE [Concomitant]
     Route: 042
  8. PALONOSETRON HYDROCHLORIDE [Concomitant]
     Route: 042
  9. DEXAMETHASONE SODIUM PHOSPHATE [Concomitant]
     Route: 042

REACTIONS (24)
  - Pancytopenia [Unknown]
  - White blood cell count decreased [Unknown]
  - White blood cell count increased [Unknown]
  - Red blood cell count decreased [Unknown]
  - Haemoglobin decreased [Unknown]
  - Haematocrit decreased [Unknown]
  - Neutrophil count decreased [Unknown]
  - Lymphocyte count decreased [Unknown]
  - Blood glucose increased [Unknown]
  - Blood creatinine decreased [Unknown]
  - Blood sodium decreased [Unknown]
  - Blood chloride decreased [Unknown]
  - Blood calcium decreased [Unknown]
  - Blood albumin decreased [Unknown]
  - Protein total decreased [Unknown]
  - Blood alkaline phosphatase increased [Unknown]
  - Aspartate aminotransferase increased [Unknown]
  - Alanine aminotransferase increased [Unknown]
  - Weight decreased [Unknown]
  - Diarrhoea [Unknown]
  - Asthenia [Unknown]
  - Dry mouth [Unknown]
  - Fatigue [Unknown]
  - Monocyte count increased [Unknown]
